FAERS Safety Report 5664713-6 (Version None)
Quarter: 2008Q1

REPORT INFORMATION
  Report Type: 
  Country: None (occurrence: None)
  Receive Date: 20080314
  Receipt Date: 20080303
  Transmission Date: 20080703
  Serious: Yes (Hospitalization, Other)
  Sender: FDA-Public Use
  Company Number: CA-ELI_LILLY_AND_COMPANY-CA200608006383

PATIENT
  Age: 46 Year
  Sex: Female

DRUGS (3)
  1. CIALIS [Suspect]
     Indication: PULMONARY HYPERTENSION
  2. OLANZAPINE [Suspect]
     Dosage: 10 MG, 2/D
  3. PREDNISONE TAB [Concomitant]

REACTIONS (1)
  - MANIA [None]
